FAERS Safety Report 23131017 (Version 2)
Quarter: 2023Q4

REPORT INFORMATION
  Report Type: Spontaneous
  Country: US (occurrence: US)
  Receive Date: 20231031
  Receipt Date: 20231205
  Transmission Date: 20240110
  Serious: No
  Sender: FDA-Public Use
  Company Number: US-SA-SAC20231025001351

PATIENT
  Sex: Male

DRUGS (8)
  1. DUPIXENT [Suspect]
     Active Substance: DUPILUMAB
     Indication: Asthma
     Dosage: 300 MG, QOW
     Route: 058
     Dates: start: 20190806
  2. ABILIFY [Concomitant]
     Active Substance: ARIPIPRAZOLE
  3. ALBUTEROL [Concomitant]
     Active Substance: ALBUTEROL
  4. BREO ELLIPTA [Concomitant]
     Active Substance: FLUTICASONE FUROATE\VILANTEROL TRIFENATATE
     Dosage: BRED ELLIPTA INH 200-25
  5. LAMICTAL XR [Concomitant]
     Active Substance: LAMOTRIGINE
  6. LOSARTAN HCT WPI [Concomitant]
     Dosage: LOSARTAN/HCT TAB 50-12.5
  7. MONTELUKAST [Concomitant]
     Active Substance: MONTELUKAST SODIUM
  8. ZOLOFT [Concomitant]
     Active Substance: SERTRALINE HYDROCHLORIDE

REACTIONS (3)
  - Infection [Unknown]
  - Impaired quality of life [Unknown]
  - Asthma [Not Recovered/Not Resolved]
